FAERS Safety Report 4456622-5 (Version None)
Quarter: 2004Q3

REPORT INFORMATION
  Report Type: 
  Country: None (occurrence: None)
  Receive Date: 20040917
  Receipt Date: 20040903
  Transmission Date: 20050211
  Serious: Yes (Hospitalization, Other)
  Sender: FDA-Public Use
  Company Number: SUSI-2004-00453

PATIENT
  Age: 50 Year
  Sex: Male
  Weight: 110 kg

DRUGS (4)
  1. ADDERALL 10 [Suspect]
     Indication: ATTENTION DEFICIT/HYPERACTIVITY DISORDER
     Dosage: 30 MG, 1-3 CAPS QD, ORAL
     Route: 048
     Dates: start: 20040119, end: 20040730
  2. CIALIS ^LILLY^ (TADALAFIL) [Concomitant]
  3. AMBIEN [Concomitant]
  4. SONATA [Concomitant]

REACTIONS (4)
  - BLOOD PRESSURE DIASTOLIC INCREASED [None]
  - CORONARY ARTERY OCCLUSION [None]
  - DRUG TOLERANCE INCREASED [None]
  - MYOCARDIAL INFARCTION [None]
